FAERS Safety Report 26117796 (Version 1)
Quarter: 2025Q4

REPORT INFORMATION
  Report Type: Spontaneous
  Country: BR (occurrence: BR)
  Receive Date: 20251203
  Receipt Date: 20251203
  Transmission Date: 20260118
  Serious: Yes (Other)
  Sender: PFIZER
  Company Number: BR-PFIZER INC-PV202500139305

PATIENT
  Age: 27 Year
  Sex: Female

DRUGS (2)
  1. ADALIMUMAB [Suspect]
     Active Substance: ADALIMUMAB
     Indication: Psoriatic arthropathy
     Dosage: UNK
  2. ADALIMUMAB [Suspect]
     Active Substance: ADALIMUMAB
     Indication: Hidradenitis

REACTIONS (4)
  - Hypopituitarism [Recovered/Resolved]
  - Growth hormone deficiency [Recovered/Resolved]
  - Secondary hypogonadism [Recovered/Resolved]
  - Hypoprolactinaemia [Recovered/Resolved]
